FAERS Safety Report 7579745-0 (Version None)
Quarter: 2011Q2

REPORT INFORMATION
  Report Type: 
  Country: None (occurrence: None)
  Receive Date: 20110629
  Receipt Date: 20110624
  Transmission Date: 20111010
  Serious: Yes (Death, Hospitalization)
  Sender: FDA-Public Use
  Company Number: US-AMGEN-USASP2011028304

PATIENT
  Age: 90 Year
  Sex: Male
  Weight: 56 kg

DRUGS (6)
  1. WINRHO [Concomitant]
     Dosage: 2.6 MG, ONE TIME DOSE
     Route: 042
     Dates: start: 20110507, end: 20110507
  2. DANAZOL [Concomitant]
     Dosage: 200 MG, TID
     Route: 048
     Dates: start: 20110509, end: 20110523
  3. VINCRISTINE [Concomitant]
     Dosage: 2 MG, ONE TIME DOSE
     Route: 042
     Dates: start: 20110506, end: 20110506
  4. NPLATE [Suspect]
     Indication: IDIOPATHIC THROMBOCYTOPENIC PURPURA
     Dosage: 56 A?G, QWK
     Route: 058
     Dates: start: 20110516, end: 20110523
  5. IVIGLOB-EX [Concomitant]
     Dosage: 54 MG, QD
     Route: 042
     Dates: start: 20110503, end: 20110505
  6. DEXAMETHASONE [Concomitant]
     Dosage: 40 MG, UNK
     Route: 042
     Dates: start: 20110509, end: 20110516

REACTIONS (4)
  - IDIOPATHIC THROMBOCYTOPENIC PURPURA [None]
  - CARDIAC ARREST [None]
  - VENTRICULAR FIBRILLATION [None]
  - PULSELESS ELECTRICAL ACTIVITY [None]
